FAERS Safety Report 6872430-X (Version None)
Quarter: 2010Q3

REPORT INFORMATION
  Report Type: 
  Country: None (occurrence: None)
  Receive Date: 20100723
  Receipt Date: 20081006
  Transmission Date: 20110219
  Serious: No
  Sender: FDA-Public Use
  Company Number: US-PFIZER INC-2008085039

PATIENT
  Age: 48 Year
  Sex: Female
  Weight: 68.04 kg

DRUGS (6)
  1. CHANTIX [Suspect]
     Indication: SMOKING CESSATION THERAPY
     Dates: start: 20071201, end: 20080925
  2. PROZAC [Concomitant]
  3. ZANAFLEX [Concomitant]
  4. KLONOPIN [Concomitant]
  5. ZYDONE [Concomitant]
  6. LIDODERM [Concomitant]
     Route: 062

REACTIONS (6)
  - DEPRESSION [None]
  - FIBROMYALGIA [None]
  - INSOMNIA [None]
  - LUNG DISORDER [None]
  - SKIN DISORDER [None]
  - WOUND HAEMORRHAGE [None]
